FAERS Safety Report 5009857-7 (Version None)
Quarter: 2006Q2

REPORT INFORMATION
  Report Type: 
  Country: None (occurrence: None)
  Receive Date: 20060523
  Receipt Date: 20060523
  Transmission Date: 20061013
  Serious: Yes (Death, Hospitalization)
  Sender: FDA-Public Use
  Company Number: None

PATIENT
  Age: 63 Year
  Sex: Male
  Weight: 72.5755 kg

DRUGS (1)
  1. WARFARIN [Suspect]
     Dosage: PO [PRIOR TP ADMISSION]
     Route: 048

REACTIONS (4)
  - CARDIAC ARREST [None]
  - GASTROINTESTINAL HAEMORRHAGE [None]
  - GASTROINTESTINAL NEOPLASM [None]
  - INTERNATIONAL NORMALISED RATIO INCREASED [None]
